FAERS Safety Report 10570669 (Version 4)
Quarter: 2015Q1

REPORT INFORMATION
  Report Type: Spontaneous
  Country: AU (occurrence: AU)
  Receive Date: 20141107
  Receipt Date: 20150326
  Transmission Date: 20150720
  Serious: Yes (Death, Other)
  Sender: FDA-Public Use
  Company Number: AU-CELGENE-008-50794-13054489

PATIENT

DRUGS (5)
  1. REVLIMID [Suspect]
     Active Substance: LENALIDOMIDE
     Indication: ACUTE MYELOID LEUKAEMIA
  2. VIDAZA [Suspect]
     Active Substance: AZACITIDINE
     Indication: ACUTE MYELOID LEUKAEMIA
  3. REVLIMID [Suspect]
     Active Substance: LENALIDOMIDE
     Indication: MYELODYSPLASTIC SYNDROME
     Dosage: 10 MILLIGRAM
     Route: 048
  4. VIDAZA [Suspect]
     Active Substance: AZACITIDINE
     Indication: CHRONIC MYELOMONOCYTIC LEUKAEMIA
  5. VIDAZA [Suspect]
     Active Substance: AZACITIDINE
     Indication: MYELODYSPLASTIC SYNDROME
     Dosage: 75 MILLIGRAM/SQ. METER
     Route: 058

REACTIONS (16)
  - Febrile neutropenia [Unknown]
  - Cardiac arrest [Unknown]
  - Haemorrhage intracranial [Unknown]
  - Neutropenia [Unknown]
  - Fatigue [Unknown]
  - Abdominal infection [Unknown]
  - Myelodysplastic syndrome [Unknown]
  - Haemorrhage [Unknown]
  - Embolism venous [Unknown]
  - Respiratory tract infection [Unknown]
  - Infection [Fatal]
  - Thrombocytopenia [Unknown]
  - Sepsis [Unknown]
  - Anaemia [Unknown]
  - Adverse event [Unknown]
  - Gamma-glutamyltransferase increased [Unknown]
